FAERS Safety Report 5097317-7 (Version None)
Quarter: 2006Q3

REPORT INFORMATION
  Report Type: 
  Country: None (occurrence: None)
  Receive Date: 20060906
  Receipt Date: 20060904
  Transmission Date: 20061208
  Serious: Yes (Other)
  Sender: FDA-Public Use
  Company Number: US-UCBSA-8018642

PATIENT
  Age: 56 Year
  Sex: Female

DRUGS (9)
  1. ADVAIR DISKUS 100/50 [Suspect]
  2. LYRICA [Suspect]
     Indication: BACK DISORDER
     Dosage: 75MG TWICE PER DAY
     Route: 048
     Dates: start: 20060704
  3. METFORMIN [Suspect]
     Indication: DIABETES MELLITUS
  4. COZAAR [Suspect]
     Indication: PROTEINURIA
  5. ZYRTEC [Suspect]
  6. ACCOLATE [Concomitant]
  7. ALBUTEROL [Concomitant]
  8. LEVOXYL [Concomitant]
  9. OMEPRAZOLE [Concomitant]

REACTIONS (7)
  - BLOOD GLUCOSE INCREASED [None]
  - CHEST DISCOMFORT [None]
  - DIABETES MELLITUS [None]
  - DIZZINESS [None]
  - DRUG INTERACTION [None]
  - NERVE INJURY [None]
  - SPINAL DISORDER [None]
